FAERS Safety Report 9651973 (Version 1)
Quarter: 2013Q4

REPORT INFORMATION
  Report Type: Spontaneous
  Country: US (occurrence: None)
  Receive Date: 20131028
  Receipt Date: 20131028
  Transmission Date: 20140711
  Serious: Yes (Other)
  Sender: FDA-Public Use
  Company Number: None

PATIENT
  Age: 61 Year
  Sex: Male
  Weight: 81.65 kg

DRUGS (1)
  1. LEXISCAN [Suspect]
     Indication: CARDIAC IMAGING PROCEDURE
     Dates: start: 20131024

REACTIONS (4)
  - Nausea [None]
  - Vomiting [None]
  - Flushing [None]
  - Paraesthesia [None]
